FAERS Safety Report 10328664 (Version 4)
Quarter: 2018Q4

REPORT INFORMATION
  Report Type: Spontaneous
  Country: BR (occurrence: BR)
  Receive Date: 20140721
  Receipt Date: 20181019
  Transmission Date: 20190204
  Serious: Yes (Other)
  Sender: FDA-Public Use
  Company Number: BR-PFIZER INC-2014198453

PATIENT
  Age: 59 Year
  Sex: Female
  Weight: 66 kg

DRUGS (4)
  1. FRONTAL XR [Suspect]
     Active Substance: ALPRAZOLAM
     Indication: DEPRESSION
     Dosage: 2 MG, 3X/DAY
     Route: 048
     Dates: start: 20140311
  2. OMEPRAZOLE. [Concomitant]
     Active Substance: OMEPRAZOLE
     Indication: GASTRITIS
     Dosage: 1 TABLET 3X/DAY
     Dates: start: 2004
  3. STILNOX [Concomitant]
     Active Substance: ZOLPIDEM TARTRATE
     Indication: SLEEP DISORDER THERAPY
     Dosage: 2 TABLET AT NIGHT
     Dates: start: 2010
  4. FRONTAL [Suspect]
     Active Substance: ALPRAZOLAM
     Indication: DEPRESSION
     Dosage: 1 MG, 6X/DAY
     Route: 048
     Dates: start: 2008

REACTIONS (19)
  - Fall [Unknown]
  - Tremor [Unknown]
  - Foot fracture [Unknown]
  - Anxiety [Unknown]
  - Pain [Unknown]
  - Soliloquy [Unknown]
  - Dysstasia [Unknown]
  - Fracture [Unknown]
  - Malaise [Unknown]
  - Loss of personal independence in daily activities [Unknown]
  - Crying [Unknown]
  - Memory impairment [Unknown]
  - Headache [Unknown]
  - Blindness [Unknown]
  - Gait disturbance [Unknown]
  - Sleep disorder [Unknown]
  - Panic attack [Unknown]
  - Condition aggravated [Unknown]
  - Mental disorder [Unknown]

NARRATIVE: CASE EVENT DATE: 2016
